FAERS Safety Report 21064428 (Version 33)
Quarter: 2025Q4

REPORT INFORMATION
  Report Type: Report from Study
  Country: US (occurrence: US)
  Receive Date: 20220711
  Receipt Date: 20251219
  Transmission Date: 20260117
  Serious: Yes (Other)
  Sender: PFIZER
  Company Number: US-PFIZER INC-PV202200015030

PATIENT
  Age: 68 Year
  Sex: Female
  Weight: 51.71 kg

DRUGS (2)
  1. ESTRING [Suspect]
     Active Substance: ESTRADIOL
     Indication: Atrophic vulvovaginitis
     Dosage: 7.5 UG, EVERY 3 MONTHS
     Route: 067
  2. ESTRING [Suspect]
     Active Substance: ESTRADIOL
     Indication: Urinary tract infection
     Dosage: 3 MONTH RING; ONLY COMES IN ONE DOSAGE
     Route: 067
     Dates: start: 20231011

REACTIONS (23)
  - Dermatomyositis [Unknown]
  - Rheumatoid arthritis [Unknown]
  - Haemorrhage [Unknown]
  - Neuropathy peripheral [Unknown]
  - Sjogren^s syndrome [Unknown]
  - Rib fracture [Unknown]
  - Off label use [Unknown]
  - Device difficult to use [Unknown]
  - Device use issue [Unknown]
  - Product use issue [Unknown]
  - Spinal column injury [Unknown]
  - Head injury [Unknown]
  - Loss of personal independence in daily activities [Unknown]
  - Pain [Unknown]
  - Impaired driving ability [Unknown]
  - Dyslexia [Unknown]
  - Oestrogen deficiency [Unknown]
  - Fatigue [Unknown]
  - Ear discomfort [Unknown]
  - Visual impairment [Not Recovered/Not Resolved]
  - Incontinence [Unknown]
  - Joint dislocation [Unknown]
  - Fall [Unknown]

NARRATIVE: CASE EVENT DATE: 20230101
